FAERS Safety Report 16647449 (Version 1)
Quarter: 2019Q3

REPORT INFORMATION
  Report Type: Spontaneous
  Country: US (occurrence: US)
  Receive Date: 20190729
  Receipt Date: 20190729
  Transmission Date: 20191004
  Serious: Yes (Hospitalization)
  Sender: FDA-Public Use
  Company Number: None

PATIENT
  Age: 68 Year
  Sex: Male

DRUGS (2)
  1. SPRYCEL [Suspect]
     Active Substance: DASATINIB
     Indication: CHRONIC MYELOID LEUKAEMIA
     Route: 048
     Dates: start: 20180221
  2. JAKAFI [Concomitant]
     Active Substance: RUXOLITINIB

REACTIONS (6)
  - Sepsis [None]
  - Pain of skin [None]
  - Blister [None]
  - Mood altered [None]
  - Thrombosis [None]
  - Furuncle [None]

NARRATIVE: CASE EVENT DATE: 20181201
